FAERS Safety Report 7009348-8 (Version None)
Quarter: 2010Q3

REPORT INFORMATION
  Report Type: 
  Country: None (occurrence: None)
  Receive Date: 20100921
  Receipt Date: 20100910
  Transmission Date: 20110219
  Serious: Yes (Death, Hospitalization)
  Sender: FDA-Public Use
  Company Number: 2010EU004824

PATIENT
  Age: 53 Year
  Sex: Male

DRUGS (2)
  1. TACROLIMUS [Suspect]
     Indication: LIVER TRANSPLANT
  2. MYCOPHENOLATE MOFETIL [Suspect]
     Indication: LIVER TRANSPLANT

REACTIONS (22)
  - ABNORMAL BEHAVIOUR [None]
  - ANXIETY [None]
  - APRAXIA [None]
  - BRAIN INJURY [None]
  - CEREBRAL ARTERITIS [None]
  - CEREBRAL ISCHAEMIA [None]
  - COMA [None]
  - COORDINATION ABNORMAL [None]
  - DISORIENTATION [None]
  - DYSARTHRIA [None]
  - DYSPHAGIA [None]
  - FATIGUE [None]
  - GAIT DISTURBANCE [None]
  - HAEMOGLOBIN DECREASED [None]
  - HEADACHE [None]
  - HEMIPARESIS [None]
  - HYPERTENSION [None]
  - INSOMNIA [None]
  - RENAL FAILURE [None]
  - SMOOTH MUSCLE ANTIBODY POSITIVE [None]
  - VASCULITIS [None]
  - VOMITING [None]
